FAERS Safety Report 7363312-8 (Version None)
Quarter: 2011Q1

REPORT INFORMATION
  Report Type: 
  Country: None (occurrence: None)
  Receive Date: 20110321
  Receipt Date: 20110308
  Transmission Date: 20110831
  Serious: Yes (Hospitalization)
  Sender: FDA-Public Use
  Company Number: US-JNJFOC-20101107289

PATIENT
  Sex: Male
  Weight: 65.1 kg

DRUGS (3)
  1. INFLIXIMAB, RECOMBINANT [Suspect]
     Route: 065
  2. INFLIXIMAB, RECOMBINANT [Suspect]
     Indication: ILL-DEFINED DISORDER
     Route: 065
  3. MESALAMINE [Concomitant]

REACTIONS (2)
  - DIARRHOEA [None]
  - ABDOMINAL PAIN [None]
